FAERS Safety Report 16219281 (Version 6)
Quarter: 2020Q1

REPORT INFORMATION
  Report Type: Spontaneous
  Country: DE (occurrence: DE)
  Receive Date: 20190419
  Receipt Date: 20200120
  Transmission Date: 20200409
  Serious: Yes (Hospitalization, Other)
  Sender: FDA-Public Use
  Company Number: PHHY2019DE088843

PATIENT
  Sex: Female
  Weight: 90 kg

DRUGS (37)
  1. VALSARTAN. [Suspect]
     Active Substance: VALSARTAN
     Indication: HYPERTENSION
     Dosage: 80 MG, QD (IN EVENING)
     Route: 065
     Dates: start: 201412, end: 201804
  2. PACLITAXEL. [Suspect]
     Active Substance: PACLITAXEL
     Dosage: 80 MG/M2, ONCE/SINGLE
     Route: 065
     Dates: start: 20190704, end: 20190704
  3. CHOLECALCIFEROL [Concomitant]
     Active Substance: CHOLECALCIFEROL
     Indication: PRODUCT USED FOR UNKNOWN INDICATION
     Dosage: 1000 IU, QD (MORNING)
     Route: 065
  4. METAMIZOLE [Concomitant]
     Active Substance: METAMIZOLE
     Indication: PAIN
     Dosage: 30 DROPS OF SOLUTION WITH 500 MG/ML, UP TO 4 TIMES PRN
     Route: 065
  5. PANTOZLE [Concomitant]
     Active Substance: PANTOPRAZOLE SODIUM
     Indication: PRODUCT USED FOR UNKNOWN INDICATION
     Dosage: 20 MG, QD (MORNING)
     Route: 065
  6. EPIRUBICIN [Suspect]
     Active Substance: EPIRUBICIN
     Indication: BREAST CANCER
     Dosage: 90 MG/M2, ONCE/SINGLE
     Route: 065
     Dates: start: 20190207, end: 20190207
  7. EPIRUBICIN [Suspect]
     Active Substance: EPIRUBICIN
     Dosage: 90 MG/M2, ONCE/SINGLE
     Route: 065
     Dates: start: 20190228, end: 20190228
  8. JODID [Concomitant]
     Active Substance: IODINE
     Indication: PRODUCT USED FOR UNKNOWN INDICATION
     Dosage: 200 MG, QD (MORNING)
     Route: 065
  9. CYCLOPHOSPHAMIDE. [Suspect]
     Active Substance: CYCLOPHOSPHAMIDE
     Indication: BREAST CANCER
     Dosage: 600 MG/M2, ONCE/SINGLE
     Route: 065
     Dates: start: 20190207, end: 20190207
  10. CYCLOPHOSPHAMIDE. [Suspect]
     Active Substance: CYCLOPHOSPHAMIDE
     Dosage: 600 MG/M2, ONCE/SINGLE
     Route: 065
     Dates: start: 20190228, end: 20190228
  11. CYCLOPHOSPHAMIDE. [Suspect]
     Active Substance: CYCLOPHOSPHAMIDE
     Dosage: 600 MG/M2, ONCE/SINGLE
     Route: 065
     Dates: start: 20190321, end: 20190321
  12. PACLITAXEL. [Suspect]
     Active Substance: PACLITAXEL
     Dosage: 80 MG/M2, ONCE/SINGLE
     Route: 065
     Dates: start: 20190621, end: 20190621
  13. BISOPROLOL [Concomitant]
     Active Substance: BISOPROLOL
     Indication: PRODUCT USED FOR UNKNOWN INDICATION
     Dosage: 2.5 MG, BID (MORNING AND EVENING)
     Route: 065
  14. ATORVASTATIN [Concomitant]
     Active Substance: ATORVASTATIN
     Indication: PRODUCT USED FOR UNKNOWN INDICATION
     Dosage: 80 MG, QD (IN EVENING)
     Route: 065
  15. MONTELUKAST [Concomitant]
     Active Substance: MONTELUKAST SODIUM
     Indication: PRODUCT USED FOR UNKNOWN INDICATION
     Dosage: 20 MG, QD (EVENING)
     Route: 065
  16. PACLITAXEL. [Suspect]
     Active Substance: PACLITAXEL
     Dosage: 80 MG/M2, ONCE/SINGLE
     Route: 065
     Dates: start: 20190522, end: 20190522
  17. PACLITAXEL. [Suspect]
     Active Substance: PACLITAXEL
     Dosage: 80 MG/M2, ONCE/SINGLE
     Route: 065
     Dates: start: 20190529, end: 20190529
  18. PACLITAXEL. [Suspect]
     Active Substance: PACLITAXEL
     Dosage: 80 MG/M2, ONCE/SINGLE
     Route: 065
     Dates: start: 20190711, end: 20190711
  19. TELMISARTAN. [Concomitant]
     Active Substance: TELMISARTAN
     Dosage: 40 MG, PRN (ADD NEEDED)
     Route: 065
  20. ASPIRIN. [Concomitant]
     Active Substance: ASPIRIN
     Indication: PRODUCT USED FOR UNKNOWN INDICATION
     Dosage: 100 MG, UNK
     Route: 065
     Dates: start: 201412, end: 201905
  21. DICLOFENAC [Suspect]
     Active Substance: DICLOFENAC
     Indication: PRODUCT USED FOR UNKNOWN INDICATION
     Dosage: UNK
     Route: 065
  22. EPIRUBICIN [Suspect]
     Active Substance: EPIRUBICIN
     Dosage: 90 MG/M2, ONCE/SINGLE
     Route: 065
     Dates: start: 20190411, end: 20190411
  23. PACLITAXEL. [Suspect]
     Active Substance: PACLITAXEL
     Dosage: 80 MG/M2, ONCE/SINGLE
     Route: 065
     Dates: start: 20190614, end: 20190614
  24. CLOPIDOGREL [Concomitant]
     Active Substance: CLOPIDOGREL BISULFATE
     Indication: PRODUCT USED FOR UNKNOWN INDICATION
     Dosage: UNK
     Route: 065
     Dates: start: 201707, end: 201808
  25. TELMISARTAN. [Concomitant]
     Active Substance: TELMISARTAN
     Indication: HYPERTENSION
     Dosage: 80 MG, QD (IN EVENING)
     Route: 065
     Dates: start: 201804
  26. CRATAEGUTT [Concomitant]
     Indication: PRODUCT USED FOR UNKNOWN INDICATION
     Dosage: 450 MG, UNK
     Route: 065
     Dates: start: 201607, end: 201905
  27. LEVOTHYROXINE. [Concomitant]
     Active Substance: LEVOTHYROXINE
     Indication: PRODUCT USED FOR UNKNOWN INDICATION
     Dosage: 150 UG, QD (MORNING)
     Route: 065
  28. MAGNESIUM [Concomitant]
     Active Substance: MAGNESIUM
     Indication: PRODUCT USED FOR UNKNOWN INDICATION
     Dosage: 5 MMOL/5G, QD (MAGNESIUM ION, BAG)
     Route: 065
  29. CYCLOPHOSPHAMIDE. [Suspect]
     Active Substance: CYCLOPHOSPHAMIDE
     Dosage: 600 MG/M2, ONCE/SINGLE
     Route: 065
     Dates: start: 20190411, end: 20190411
  30. PACLITAXEL. [Suspect]
     Active Substance: PACLITAXEL
     Indication: BREAST CANCER
     Dosage: 80 MG/M2, ONCE/SINGLE
     Route: 065
     Dates: start: 20190516, end: 20190516
  31. BISOPROLOL [Concomitant]
     Active Substance: BISOPROLOL
     Dosage: 2.5 MG, QD (AT NOON)
     Route: 065
     Dates: start: 201707, end: 201905
  32. PANTOPRAZOLE [Concomitant]
     Active Substance: PANTOPRAZOLE
     Indication: PRODUCT USED FOR UNKNOWN INDICATION
     Dosage: 20 MG, QD (DAILY MORNINGS)
     Route: 065
     Dates: start: 201412, end: 201905
  33. CALCIUM [Concomitant]
     Active Substance: CALCIUM
     Indication: PRODUCT USED FOR UNKNOWN INDICATION
     Dosage: 500 MG, QD (MORNING)
     Route: 065
  34. IBUPROFEN. [Concomitant]
     Active Substance: IBUPROFEN
     Indication: PRODUCT USED FOR UNKNOWN INDICATION
     Dosage: 400 MG (AS NEEDED)
     Route: 065
  35. EPIRUBICIN [Suspect]
     Active Substance: EPIRUBICIN
     Dosage: 90 MG/M2, ONCE/SINGLE
     Route: 065
     Dates: start: 20190321, end: 20190321
  36. PACLITAXEL. [Suspect]
     Active Substance: PACLITAXEL
     Dosage: 80 MG/M2, ONCE/SINGLE
     Route: 065
     Dates: start: 20190607, end: 20190607
  37. SELENE [Concomitant]
     Indication: PRODUCT USED FOR UNKNOWN INDICATION
     Dosage: 1 DF, QD (MORNING)
     Route: 065

REACTIONS (25)
  - Pneumonia [Unknown]
  - Chest discomfort [Unknown]
  - Immunodeficiency [Unknown]
  - Ejection fraction decreased [Unknown]
  - Asthenia [Unknown]
  - Pericardial effusion [Unknown]
  - Cardiac failure [Unknown]
  - Respiratory failure [Unknown]
  - Pulmonary oedema [Unknown]
  - Cough [Unknown]
  - Pleural effusion [Unknown]
  - Eczema [Unknown]
  - Leukopenia [Unknown]
  - Fatigue [Unknown]
  - Invasive ductal breast carcinoma [Not Recovered/Not Resolved]
  - Haematoma [Unknown]
  - Pulmonary embolism [Unknown]
  - Blood pressure increased [Unknown]
  - Dyspnoea [Unknown]
  - Drug intolerance [Unknown]
  - Acute myocardial infarction [Unknown]
  - Polyneuropathy [Unknown]
  - Carotid arteriosclerosis [Unknown]
  - Hypotension [Unknown]
  - Hepatic steatosis [Unknown]

NARRATIVE: CASE EVENT DATE: 2017
